FAERS Safety Report 8358406-4 (Version None)
Quarter: 2012Q2

REPORT INFORMATION
  Report Type: 
  Country: None (occurrence: None)
  Receive Date: 20120514
  Receipt Date: 20120504
  Transmission Date: 20120825
  Serious: Yes (Hospitalization)
  Sender: FDA-Public Use
  Company Number: US-TEVA-336798USA

PATIENT
  Sex: Female

DRUGS (1)
  1. ACTIQ [Suspect]
     Indication: CRANIOCEREBRAL INJURY
     Route: 002

REACTIONS (4)
  - PNEUMONIA BACTERIAL [None]
  - VOMITING [None]
  - VERTIGO [None]
  - OFF LABEL USE [None]
